FAERS Safety Report 7749757-2 (Version None)
Quarter: 2011Q3

REPORT INFORMATION
  Report Type: 
  Country: None (occurrence: None)
  Receive Date: 20110914
  Receipt Date: 20110904
  Transmission Date: 20111222
  Serious: Yes (Death)
  Sender: FDA-Public Use
  Company Number: DZ-ROCHE-800888

PATIENT
  Sex: Female

DRUGS (1)
  1. AVASTIN [Suspect]
     Indication: BREAST CANCER
     Dosage: FREQUENCY: PER CURE
     Route: 065
     Dates: start: 20110106, end: 20110401

REACTIONS (4)
  - BONE PAIN [None]
  - NEOPLASM MALIGNANT [None]
  - MALIGNANT PERITONEAL NEOPLASM [None]
  - ASCITES [None]
